FAERS Safety Report 6650944-5 (Version None)
Quarter: 2010Q1

REPORT INFORMATION
  Report Type: 
  Country: None (occurrence: None)
  Receive Date: 20100325
  Receipt Date: 20100310
  Transmission Date: 20100710
  Serious: No
  Sender: FDA-Public Use
  Company Number: US-BIOGENIDEC-2010BI008398

PATIENT
  Age: 52 Year
  Sex: Female

DRUGS (2)
  1. TYSABRI [Suspect]
     Indication: MULTIPLE SCLEROSIS
     Route: 042
     Dates: start: 20071129, end: 20080502
  2. TYSABRI [Suspect]
     Route: 042
     Dates: start: 20080605

REACTIONS (3)
  - ERYTHEMA [None]
  - HERPES ZOSTER [None]
  - PRURITUS [None]
